FAERS Safety Report 6344085-4 (Version None)
Quarter: 2009Q3

REPORT INFORMATION
  Report Type: 
  Country: None (occurrence: None)
  Receive Date: 20090908
  Receipt Date: 20090902
  Transmission Date: 20100115
  Serious: Yes (Disabling, Other)
  Sender: FDA-Public Use
  Company Number: US-MERCK-0907USA00391

PATIENT
  Age: 69 Year
  Sex: Male

DRUGS (10)
  1. JANUVIA [Suspect]
     Indication: TYPE 2 DIABETES MELLITUS
     Route: 048
     Dates: start: 20080527, end: 20090702
  2. PLAVIX [Concomitant]
     Indication: ARTERIOSCLEROSIS CORONARY ARTERY
     Route: 048
     Dates: start: 20080310
  3. COZAAR [Concomitant]
     Indication: HYPERTENSION
     Route: 048
     Dates: start: 20070827
  4. TOPROL-XL [Concomitant]
     Indication: HYPERTENSION
     Route: 048
     Dates: start: 20070827
  5. TOPROL-XL [Concomitant]
     Indication: ANGINA PECTORIS
     Route: 048
     Dates: start: 20070827
  6. SPIRONOLACTONE [Concomitant]
     Indication: OEDEMA
     Route: 048
     Dates: start: 20080310
  7. ISOSORBIDE MONONITRATE [Concomitant]
     Indication: ANGINA PECTORIS
     Route: 048
     Dates: start: 20070827
  8. ISOSORBIDE MONONITRATE [Concomitant]
     Indication: CORONARY ARTERY DISEASE
     Route: 048
     Dates: start: 20070827
  9. SIMCOR [Concomitant]
     Indication: BLOOD CHOLESTEROL
     Route: 048
     Dates: start: 20090708
  10. SIMVASTATIN [Concomitant]
     Indication: BLOOD CHOLESTEROL
     Route: 048
     Dates: start: 20080527

REACTIONS (3)
  - CARBOHYDRATE ANTIGEN 19-9 INCREASED [None]
  - HEPATITIS [None]
  - PANCREATITIS ACUTE [None]
